FAERS Safety Report 5316758-3 (Version None)
Quarter: 2007Q2

REPORT INFORMATION
  Report Type: 
  Country: None (occurrence: None)
  Receive Date: 20070501
  Receipt Date: 20070501
  Transmission Date: 20071010
  Serious: Yes (Hospitalization)
  Sender: FDA-Public Use
  Company Number: None

PATIENT
  Age: 65 Year
  Sex: Male
  Weight: 90.7194 kg

DRUGS (11)
  1. FUROSEMIDE [Suspect]
     Dosage: 40 MG DAILY
  2. LISINOPRIL [Suspect]
     Dosage: 2.5 MG DAILY
     Dates: start: 20070417, end: 20070423
  3. FINASTERIDE [Concomitant]
  4. FOLIC ACID [Concomitant]
  5. LAMIVUDINE [Concomitant]
  6. METOPROLOL SUCCINATE [Concomitant]
  7. NEVIRAPINE [Concomitant]
  8. OMEPRAZOLE [Concomitant]
  9. THIAMINE [Concomitant]
  10. SENNOSIDES [Concomitant]
  11. NOVOLIN 70/30 [Concomitant]

REACTIONS (2)
  - DIABETIC NEPHROPATHY [None]
  - RENAL FAILURE ACUTE [None]
